FAERS Safety Report 18581119 (Version 1)
Quarter: 2020Q4

REPORT INFORMATION
  Report Type: Spontaneous
  Country: US (occurrence: US)
  Receive Date: 20201204
  Receipt Date: 20201204
  Transmission Date: 20210114
  Serious: No
  Sender: FDA-Public Use
  Company Number: US-TAKEDA-2020TUS053687

PATIENT

DRUGS (1)
  1. ENTYVIO [Suspect]
     Active Substance: VEDOLIZUMAB
     Indication: PRODUCT USED FOR UNKNOWN INDICATION
     Dosage: UNK UNK, Q6WEEKS
     Route: 065

REACTIONS (5)
  - Off label use [Unknown]
  - Mental fatigue [Unknown]
  - Pain [Unknown]
  - Fatigue [Unknown]
  - Hypersomnia [Unknown]
